FAERS Safety Report 5989314-1 (Version None)
Quarter: 2008Q4

REPORT INFORMATION
  Report Type: 
  Country: None (occurrence: None)
  Receive Date: 20081205
  Receipt Date: 20081120
  Transmission Date: 20090506
  Serious: Yes (Hospitalization)
  Sender: FDA-Public Use
  Company Number: 2008S1020832

PATIENT
  Age: 85 Year
  Sex: Female

DRUGS (1)
  1. CLOZAPINE [Suspect]
     Indication: DELIRIUM
     Dosage: 12.5 MG; DAILY; ORAL
     Route: 048
     Dates: start: 20081013, end: 20081014

REACTIONS (1)
  - TROPONIN I INCREASED [None]
